FAERS Safety Report 20952676 (Version 2)
Quarter: 2022Q3

REPORT INFORMATION
  Report Type: Spontaneous
  Country: US (occurrence: US)
  Receive Date: 20220613
  Receipt Date: 20220809
  Transmission Date: 20221027
  Serious: No
  Sender: FDA-Public Use
  Company Number: US-BRISTOL-MYERS SQUIBB COMPANY-2022-047071

PATIENT
  Age: 76 Year
  Sex: Female

DRUGS (5)
  1. POMALYST [Suspect]
     Active Substance: POMALIDOMIDE
     Indication: Plasma cell myeloma
     Dosage: QD X 21 DAYS THEN 7 DAYS OFF
     Route: 048
     Dates: start: 20211004
  2. POMALYST [Suspect]
     Active Substance: POMALIDOMIDE
     Route: 048
     Dates: start: 20220203, end: 20220517
  3. DARZALEX [Concomitant]
     Active Substance: DARATUMUMAB
     Indication: Plasma cell myeloma
     Dosage: 1800/30000 UNITS, 2 CYCLES
     Route: 058
  4. DARZALEX [Concomitant]
     Active Substance: DARATUMUMAB
     Dosage: 4 CYCLES
     Route: 065
  5. DARZALEX [Concomitant]
     Active Substance: DARATUMUMAB
     Route: 048

REACTIONS (3)
  - Immune system disorder [Unknown]
  - White blood cell count decreased [Unknown]
  - Neutrophil count decreased [Not Recovered/Not Resolved]

NARRATIVE: CASE EVENT DATE: 20220502
